FAERS Safety Report 7132901-8 (Version None)
Quarter: 2010Q4

REPORT INFORMATION
  Report Type: 
  Country: None (occurrence: None)
  Receive Date: 20101202
  Receipt Date: 20101117
  Transmission Date: 20110411
  Serious: No
  Sender: FDA-Public Use
  Company Number: US-PFIZER INC-US-WYE-H18271910

PATIENT
  Sex: Female
  Weight: 78.5 kg

DRUGS (6)
  1. PREMARIN [Suspect]
     Indication: HOT FLUSH
     Dosage: 1 DF, 1X/DAY
     Route: 067
     Dates: start: 20100301, end: 20100301
  2. PREMARIN [Suspect]
     Dosage: 1 DF, 3 TIMES PER 1 WK
     Route: 067
     Dates: start: 20100101, end: 20100101
  3. PREMARIN [Suspect]
     Dosage: 1 DF, WEEKLY
     Route: 067
     Dates: start: 20100101, end: 20101019
  4. MEPERIDINE HYDROCHLORIDE [Concomitant]
  5. ATIVAN [Concomitant]
  6. ACYCLOVIR SODIUM [Concomitant]

REACTIONS (5)
  - APPLICATION SITE ERYTHEMA [None]
  - APPLICATION SITE IRRITATION [None]
  - APPLICATION SITE PAIN [None]
  - APPLICATION SITE PRURITUS [None]
  - APPLICATION SITE SWELLING [None]
